FAERS Safety Report 9339993 (Version 1)
Quarter: 2013Q2

REPORT INFORMATION
  Report Type: Spontaneous
  Country: US (occurrence: None)
  Receive Date: 20130607
  Receipt Date: 20130607
  Transmission Date: 20140414
  Serious: Yes (Other)
  Sender: FDA-Public Use
  Company Number: None

PATIENT
  Age: 37 Year
  Sex: Female
  Weight: 58.51 kg

DRUGS (1)
  1. METHYLPHENIDATE [Suspect]
     Indication: ATTENTION DEFICIT/HYPERACTIVITY DISORDER
     Dates: start: 20130531, end: 20130605

REACTIONS (6)
  - Drug ineffective [None]
  - Product substitution issue [None]
  - Product quality issue [None]
  - Feeling jittery [None]
  - Mania [None]
  - Therapeutic response unexpected with drug substitution [None]
